FAERS Safety Report 4859871-7 (Version None)
Quarter: 2005Q4

REPORT INFORMATION
  Report Type: 
  Country: None (occurrence: None)
  Receive Date: 20051215
  Receipt Date: 20051209
  Transmission Date: 20060501
  Serious: Yes (Hospitalization)
  Sender: FDA-Public Use
  Company Number: IND-AE-05-SAN-070

PATIENT
  Age: 43 Year
  Sex: Female

DRUGS (4)
  1. CERIS (TROSPIUM CHLORIDE) MADAUS [Suspect]
     Dates: start: 20050805, end: 20050906
  2. KARDEGIC (EX KARDIREN) [Concomitant]
  3. VISCERALGINE [Concomitant]
  4. VEINAMITOL [Concomitant]

REACTIONS (2)
  - OCULAR HYPERTENSION [None]
  - RETINAL ARTERY THROMBOSIS [None]
